FAERS Safety Report 5269045-6 (Version None)
Quarter: 2007Q1

REPORT INFORMATION
  Report Type: 
  Country: None (occurrence: None)
  Receive Date: 20070319
  Receipt Date: 20070307
  Transmission Date: 20070707
  Serious: Yes (Life-Threatening)
  Sender: FDA-Public Use
  Company Number: 2007AP01446

PATIENT
  Age: 18537 Day
  Sex: Female
  Weight: 36.2 kg

DRUGS (19)
  1. CRESTOR [Suspect]
     Indication: HYPERLIPIDAEMIA
     Route: 048
     Dates: start: 20070116, end: 20070306
  2. FLORID [Suspect]
     Indication: ORAL CANDIDIASIS
     Route: 048
     Dates: start: 20070219, end: 20070226
  3. WARFARIN SODIUM [Suspect]
     Indication: PULMONARY HYPERTENSION
     Route: 048
     Dates: start: 20061113, end: 20070306
  4. WARFARIN SODIUM [Suspect]
     Indication: DEEP VEIN THROMBOSIS
     Route: 048
     Dates: start: 20061113, end: 20070306
  5. PREDONINE [Concomitant]
     Indication: SCLERODERMA
     Route: 048
     Dates: start: 20061109
  6. PREDONINE [Concomitant]
     Indication: INTERSTITIAL LUNG DISEASE
     Route: 048
     Dates: start: 20061109
  7. PREDONINE [Concomitant]
     Route: 048
  8. PREDONINE [Concomitant]
     Route: 048
  9. PREDONINE [Concomitant]
     Route: 048
  10. PREDONINE [Concomitant]
     Route: 048
  11. PREDONINE [Concomitant]
     Route: 048
     Dates: end: 20070110
  12. PREDONINE [Concomitant]
     Route: 048
     Dates: end: 20070110
  13. PREDONINE [Concomitant]
     Route: 048
     Dates: start: 20070110
  14. PREDONINE [Concomitant]
     Route: 048
     Dates: start: 20070110
  15. PARIET [Concomitant]
     Indication: REFLUX OESOPHAGITIS
     Route: 048
     Dates: start: 20061109
  16. DORNER [Concomitant]
     Indication: PULMONARY HYPERTENSION
     Route: 048
     Dates: start: 20061113
  17. GLUCOBAY [Concomitant]
     Indication: DIABETES MELLITUS
     Route: 048
     Dates: start: 20061124
  18. MAGLAX [Concomitant]
     Indication: CONSTIPATION
     Route: 048
     Dates: start: 20060101
  19. LENDORMIN D [Concomitant]
     Indication: INSOMNIA
     Route: 048
     Dates: start: 20070116

REACTIONS (5)
  - GINGIVAL BLEEDING [None]
  - INTERNATIONAL NORMALISED RATIO INCREASED [None]
  - LIP HAEMORRHAGE [None]
  - PROTHROMBIN TIME PROLONGED [None]
  - PULMONARY ALVEOLAR HAEMORRHAGE [None]
